FAERS Safety Report 11286665 (Version 1)
Quarter: 2015Q2

REPORT INFORMATION
  Report Type: Spontaneous
  Country: US (occurrence: None)
  Receive Date: 20150623
  Receipt Date: 20150623
  Transmission Date: 20150821
  Serious: Yes (Other)
  Sender: FDA-Public Use
  Company Number: RB-65966-2014

PATIENT
  Age: 75 Year
  Sex: Male

DRUGS (3)
  1. MUCINEX DM [Suspect]
     Active Substance: DEXTROMETHORPHAN HYDROBROMIDE\GUAIFENESIN
     Indication: COUGH
     Dosage: (1200 MG, 2 TABLETS A DAY. PATIENT HAD TAKEN PRODUCT FOR APPROXIMATELY 2 WEEKS. ORAL)
     Route: 048
     Dates: start: 20140430
  2. ASPIRIN. [Concomitant]
     Active Substance: ASPIRIN
  3. CARVEDILOL. [Concomitant]
     Active Substance: CARVEDILOL

REACTIONS (2)
  - Hypertension [None]
  - Incorrect drug administration duration [None]

NARRATIVE: CASE EVENT DATE: 20140430
